FAERS Safety Report 4662773-2 (Version None)
Quarter: 2005Q2

REPORT INFORMATION
  Report Type: 
  Country: None (occurrence: None)
  Receive Date: 20050512
  Receipt Date: 20050422
  Transmission Date: 20051028
  Serious: Yes (Life-Threatening, Other)
  Sender: FDA-Public Use
  Company Number: JP_040603514

PATIENT
  Age: 61 Year
  Sex: Male
  Weight: 56 kg

DRUGS (4)
  1. GEMZAR [Suspect]
     Indication: PANCREATIC CARCINOMA
     Dosage: 1000 MG/M2 OTHER
     Route: 050
     Dates: start: 20031117, end: 20031125
  2. MORPHINE HCL ELIXIR [Concomitant]
  3. HUMULIN R [Concomitant]
  4. ROHYPNOL (FLUNITRAZEPAM) [Concomitant]

REACTIONS (15)
  - ABDOMINAL DISTENSION [None]
  - ALANINE AMINOTRANSFERASE INCREASED [None]
  - ASCITES [None]
  - ASPARTATE AMINOTRANSFERASE INCREASED [None]
  - BLOOD ALKALINE PHOSPHATASE INCREASED [None]
  - BLOOD BILIRUBIN INCREASED [None]
  - CONDITION AGGRAVATED [None]
  - CONSTIPATION [None]
  - EATING DISORDER [None]
  - GAMMA-GLUTAMYLTRANSFERASE INCREASED [None]
  - INTESTINAL OBSTRUCTION [None]
  - MALIGNANT NEOPLASM PROGRESSION [None]
  - PANCREATIC CARCINOMA METASTATIC [None]
  - PERITONITIS [None]
  - PYREXIA [None]
